FAERS Safety Report 16408859 (Version 1)
Quarter: 2019Q2

REPORT INFORMATION
  Report Type: Report from Study
  Country: HN (occurrence: HN)
  Receive Date: 20190610
  Receipt Date: 20190610
  Transmission Date: 20190711
  Serious: Yes (Hospitalization)
  Sender: FDA-Public Use
  Company Number: PHHY2019HN131077

PATIENT
  Age: 69 Year
  Sex: Male

DRUGS (1)
  1. VYMADA [Suspect]
     Active Substance: SACUBITRIL\VALSARTAN
     Indication: PRODUCT USED FOR UNKNOWN INDICATION
     Dosage: 200 MG (SACUBITRIL 97MG AND VALSARTAN 103MG), UNK
     Route: 065

REACTIONS (3)
  - Carditis [Unknown]
  - Pericardial effusion [Unknown]
  - Malaise [Unknown]
